FAERS Safety Report 9462803 (Version 2)
Quarter: 2013Q4

REPORT INFORMATION
  Report Type: Spontaneous
  Country: IT (occurrence: None)
  Receive Date: 20130814
  Receipt Date: 20131008
  Transmission Date: 20140711
  Serious: Yes (Other)
  Sender: FDA-Public Use
  Company Number: AUR-APL-2013-06709

PATIENT
  Age: 70 Year
  Sex: Female

DRUGS (7)
  1. SIMVASTATIN [Suspect]
     Indication: HYPERCHOLESTEROLAEMIA
     Dosage: (20 MG, 1 D) , ORAL
     Route: 048
     Dates: start: 20090201, end: 20100801
  2. TEGRETOL (CARBAMAZEPINE) UNKNOWN [Concomitant]
  3. LARGACTIL (CHLORPROMAZINE) [Concomitant]
  4. NEXIUM (ESOMEPRAZOLE MAGNESIUM) [Concomitant]
  5. PORTOLAC (LACTITOL) [Concomitant]
  6. PURSENNID (SENNA ALEXANDRINA LEAF) [Concomitant]
  7. TAVOR (LORAZEPAM) [Concomitant]

REACTIONS (4)
  - Asthenia [None]
  - Myalgia [None]
  - Blood creatine phosphokinase increased [None]
  - Myoglobin urine present [None]
